FAERS Safety Report 20835973 (Version 3)
Quarter: 2022Q3

REPORT INFORMATION
  Report Type: Spontaneous
  Country: US (occurrence: US)
  Receive Date: 20220516
  Receipt Date: 20220914
  Transmission Date: 20221026
  Serious: Yes (Other)
  Sender: FDA-Public Use
  Company Number: US-BRISTOL-MYERS SQUIBB COMPANY-2022-023062

PATIENT
  Age: 78 Year
  Sex: Male
  Weight: 85.73 kg

DRUGS (1)
  1. POMALYST [Suspect]
     Active Substance: POMALIDOMIDE
     Indication: Plasma cell myeloma
     Dosage: 3W, 1W OFF
     Route: 048
     Dates: start: 20210401

REACTIONS (3)
  - Neuropathy peripheral [Unknown]
  - Anaemia [Unknown]
  - Arthralgia [Not Recovered/Not Resolved]
